FAERS Safety Report 10742229 (Version 1)
Quarter: 2015Q1

REPORT INFORMATION
  Report Type: Spontaneous
  Country: US (occurrence: None)
  Receive Date: 20150123
  Receipt Date: 20150123
  Transmission Date: 20150721
  Serious: Yes (Other)
  Sender: FDA-Public Use
  Company Number: None

PATIENT
  Age: 49 Year
  Sex: Male
  Weight: 123.83 kg

DRUGS (2)
  1. AZITHROMYCIN [Suspect]
     Active Substance: AZITHROMYCIN ANHYDROUS
     Indication: UPPER RESPIRATORY TRACT INFECTION
     Dosage: 5 DAY PACK AS DIRECTED TAKEN BY MOUTH
     Route: 048
     Dates: start: 20150122, end: 20150122
  2. AZITHROMYCIN [Suspect]
     Active Substance: AZITHROMYCIN ANHYDROUS
     Indication: OROPHARYNGEAL PAIN
     Dosage: 5 DAY PACK AS DIRECTED TAKEN BY MOUTH
     Route: 048
     Dates: start: 20150122, end: 20150122

REACTIONS (6)
  - Product substitution issue [None]
  - Nausea [None]
  - Abdominal pain upper [None]
  - Muscle spasms [None]
  - Vomiting [None]
  - Pyrexia [None]

NARRATIVE: CASE EVENT DATE: 20150122
